FAERS Safety Report 8537436-3 (Version None)
Quarter: 2012Q3

REPORT INFORMATION
  Report Type: 
  Country: None (occurrence: None)
  Receive Date: 20120725
  Receipt Date: 20120723
  Transmission Date: 20120928
  Serious: Yes (Hospitalization)
  Sender: FDA-Public Use
  Company Number: JP-PFIZER INC-2012087823

PATIENT
  Age: 79 Year
  Sex: Male
  Weight: 63.8 kg

DRUGS (8)
  1. DUTASTERIDE [Suspect]
     Indication: BENIGN PROSTATIC HYPERPLASIA
     Dosage: 0.5 MG, 1X/DAY
     Route: 048
     Dates: start: 20110716, end: 20120226
  2. OLMESARTAN MEDOXOMIL [Concomitant]
     Dosage: UNK
     Route: 048
     Dates: end: 20120215
  3. TOLTERODINE TARTRATE [Suspect]
     Indication: POLLAKIURIA
     Dosage: 2 MG, 1X/DAY
     Route: 048
     Dates: start: 20111111, end: 20120226
  4. ARICEPT [Concomitant]
     Route: 048
  5. FLIVASTATIN SODIUM [Concomitant]
     Dosage: UNK
     Route: 048
     Dates: end: 20120222
  6. ASPIRIN [Concomitant]
     Dosage: UNK
     Route: 048
     Dates: end: 20120222
  7. LAFUTIDINE [Concomitant]
     Dosage: UNK
     Route: 048
     Dates: end: 20120222
  8. CLARITIN [Concomitant]
     Dosage: UNK
     Route: 048
     Dates: end: 20120215

REACTIONS (1)
  - PLATELET COUNT DECREASED [None]
